FAERS Safety Report 17474793 (Version 1)
Quarter: 2020Q1

REPORT INFORMATION
  Report Type: Spontaneous
  Country: US (occurrence: US)
  Receive Date: 20200228
  Receipt Date: 20200228
  Transmission Date: 20200409
  Serious: Yes (Other)
  Sender: FDA-Public Use
  Company Number: None

PATIENT
  Age: 78 Year
  Sex: Female
  Weight: 69.85 kg

DRUGS (13)
  1. DOCUSATE 100MG [Concomitant]
     Active Substance: DOCUSATE
  2. PANTOPRAZOLE [Concomitant]
     Active Substance: PANTOPRAZOLE
  3. ASA 81MG [Concomitant]
     Active Substance: ASPIRIN
  4. MIRALAX [Concomitant]
     Active Substance: POLYETHYLENE GLYCOL 3350
  5. VITAMIN C AND D [Concomitant]
  6. CEFUROXIME 500MG [Concomitant]
     Active Substance: CEFUROXIME
  7. ENOXAPARIN 80/0.8 [Concomitant]
  8. MULTIVITAMINS [Concomitant]
     Active Substance: VITAMINS
  9. APAP 325MG [Concomitant]
  10. MILK OF MAGNESIA [Concomitant]
     Active Substance: MAGNESIUM HYDROXIDE
  11. CAPECITABINE. [Suspect]
     Active Substance: CAPECITABINE
     Indication: COLON CANCER
     Route: 048
  12. BISACODYL EC 5MG [Concomitant]
  13. IRON 256MG [Concomitant]

REACTIONS (1)
  - Disease progression [None]
